FAERS Safety Report 16397744 (Version 1)
Quarter: 2019Q2

REPORT INFORMATION
  Report Type: Spontaneous
  Country: HR (occurrence: HR)
  Receive Date: 20190606
  Receipt Date: 20190606
  Transmission Date: 20190711
  Serious: Yes (Hospitalization)
  Sender: FDA-Public Use
  Company Number: HR-STRIDES ARCOLAB LIMITED-2019SP004568

PATIENT
  Age: 64 Year
  Sex: Female

DRUGS (1)
  1. TACROLIMUS. [Suspect]
     Active Substance: TACROLIMUS
     Indication: IMMUNOSUPPRESSANT DRUG THERAPY
     Dosage: UNK
     Route: 065
     Dates: start: 2008

REACTIONS (8)
  - Normochromic normocytic anaemia [Unknown]
  - Hypomagnesaemia [Unknown]
  - C-reactive protein increased [Unknown]
  - Hypocalcaemia [Unknown]
  - Renal impairment [Unknown]
  - Pain in extremity [Unknown]
  - Hypokalaemia [Unknown]
  - Metabolic acidosis [Unknown]
